FAERS Safety Report 12736158 (Version 1)
Quarter: 2016Q3

REPORT INFORMATION
  Report Type: Report from Study
  Country: GB (occurrence: GB)
  Receive Date: 20160912
  Receipt Date: 20160912
  Transmission Date: 20161109
  Serious: Yes (Other)
  Sender: FDA-Public Use
  Company Number: PHFR2016GB007227

PATIENT
  Age: 47 Year
  Sex: Female

DRUGS (2)
  1. BACLOFEN. [Concomitant]
     Active Substance: BACLOFEN
     Indication: PRODUCT USED FOR UNKNOWN INDICATION
     Dosage: 10 MG, QD
     Route: 065
  2. GILENYA [Suspect]
     Active Substance: FINGOLIMOD HYDROCHLORIDE
     Indication: MULTIPLE SCLEROSIS
     Dosage: 0.5 MG, QD
     Route: 048
     Dates: start: 20150223

REACTIONS (9)
  - Feeling hot [Recovered/Resolved]
  - Dizziness [Recovered/Resolved]
  - Muscle spasms [Recovered/Resolved]
  - Vision blurred [Recovering/Resolving]
  - Electrocardiogram ST segment elevation [Unknown]
  - Weight decreased [Unknown]
  - Chest discomfort [Recovered/Resolved]
  - Asthenopia [Recovering/Resolving]
  - Back disorder [Unknown]

NARRATIVE: CASE EVENT DATE: 2015
